FAERS Safety Report 11455908 (Version 1)
Quarter: 2015Q3

REPORT INFORMATION
  Report Type: Report from Study
  Country: US (occurrence: US)
  Receive Date: 20150903
  Receipt Date: 20150903
  Transmission Date: 20151125
  Serious: Yes (Hospitalization)
  Sender: FDA-Public Use
  Company Number: PHEH2015US016990

PATIENT
  Sex: Female

DRUGS (1)
  1. TOBI PODHALER [Suspect]
     Active Substance: TOBRAMYCIN
     Indication: CYSTIC FIBROSIS
     Dosage: 112 MG, QD
     Route: 055
     Dates: start: 201307

REACTIONS (3)
  - Oropharyngeal pain [Recovered/Resolved]
  - Tonsillar disorder [Recovered/Resolved]
  - Cough [Recovered/Resolved]
